FAERS Safety Report 12838611 (Version 1)
Quarter: 2016Q4

REPORT INFORMATION
  Report Type: Spontaneous
  Country: US (occurrence: US)
  Receive Date: 20161012
  Receipt Date: 20161012
  Transmission Date: 20170207
  Serious: No
  Sender: FDA-Public Use
  Company Number: US-009507513-1609USA009554

PATIENT
  Age: 57 Year
  Sex: Male

DRUGS (2)
  1. SYLATRON [Suspect]
     Active Substance: PEGINTERFERON ALFA-2B
     Indication: MALIGNANT MELANOMA
     Dosage: 0.5 ML, QW
     Route: 058
     Dates: start: 201606
  2. SYLATRON [Suspect]
     Active Substance: PEGINTERFERON ALFA-2B
     Dosage: 0.5 ML, QW
     Route: 058
     Dates: start: 201606

REACTIONS (3)
  - Nausea [Unknown]
  - Balance disorder [Unknown]
  - Abdominal pain upper [Unknown]

NARRATIVE: CASE EVENT DATE: 201608
